FAERS Safety Report 7332413-2 (Version None)
Quarter: 2011Q1

REPORT INFORMATION
  Report Type: 
  Country: None (occurrence: None)
  Receive Date: 20110304
  Receipt Date: 20110224
  Transmission Date: 20110831
  Serious: Yes (Other)
  Sender: FDA-Public Use
  Company Number: US-AMGEN-USASP2011010690

PATIENT
  Age: 15 Year
  Sex: Male

DRUGS (3)
  1. ENBREL [Suspect]
     Indication: PSORIATIC ARTHROPATHY
     Dates: start: 20101001
  2. TOPAMAX [Concomitant]
  3. ALLEGRA [Concomitant]

REACTIONS (2)
  - FEELING ABNORMAL [None]
  - INFLUENZA LIKE ILLNESS [None]
